FAERS Safety Report 17873741 (Version 1)
Quarter: 2020Q2

REPORT INFORMATION
  Report Type: Spontaneous
  Country: US (occurrence: US)
  Receive Date: 20200609
  Receipt Date: 20200609
  Transmission Date: 20200714
  Serious: Yes (Other)
  Sender: FDA-Public Use
  Company Number: US-PACIRA-202000193

PATIENT
  Sex: Female

DRUGS (5)
  1. ACETAMINOPHEN. [Concomitant]
     Active Substance: ACETAMINOPHEN
     Indication: AFTERBIRTH PAIN
     Dosage: DOSE NOT PROVIDED, GIVEN AS NEEDED
     Route: 065
  2. NSAIDS [Concomitant]
     Active Substance: UNSPECIFIED INGREDIENT
     Indication: AFTERBIRTH PAIN
     Dosage: DOSE NOT PROVIDED; GIVEN AS NEEDED
     Route: 065
  3. LIDOCAINE. [Concomitant]
     Active Substance: LIDOCAINE
     Indication: LOCAL ANAESTHESIA
     Dosage: DOSE NOT PROVIDED, WHEN USED STUDY DRUG WAS DELAYED FOR 20 MINS
  4. EXPAREL [Suspect]
     Active Substance: BUPIVACAINE
     Indication: POSTOPERATIVE ANALGESIA
     Dosage: 20 ML INJECTION IN PERINEUM FOLLOWING LACERATION REPAIR
  5. OXYCODONE [Concomitant]
     Active Substance: OXYCODONE
     Indication: BREAKTHROUGH PAIN
     Dosage: IF REQUESTED
     Route: 065

REACTIONS (1)
  - Excessive granulation tissue [Unknown]
